FAERS Safety Report 12331269 (Version 2)
Quarter: 2016Q2

REPORT INFORMATION
  Report Type: Spontaneous
  Country: TR (occurrence: TR)
  Receive Date: 20160504
  Receipt Date: 20160608
  Transmission Date: 20160815
  Serious: Yes (Other)
  Sender: FDA-Public Use
  Company Number: TR-ACTAVIS-2016-08965

PATIENT
  Age: 51 Year
  Sex: Male
  Weight: 83 kg

DRUGS (5)
  1. AVIL                               /00085102/ [Concomitant]
     Indication: ANTIALLERGIC THERAPY
     Dosage: 45.5 MG, UNKNOWN (AMPULE)
     Route: 042
     Dates: start: 20160401, end: 20160401
  2. ULCURAN [Concomitant]
     Indication: ULCER
     Dosage: 50 MG, UNKNOWN (AMPULE)
     Route: 042
     Dates: start: 20160401, end: 20160401
  3. DEKSAMET                           /00016001/ [Concomitant]
     Indication: STEROID THERAPY
     Dosage: UNK (AMPULE, 8 M)
     Route: 042
     Dates: start: 20160401, end: 20160401
  4. TADOCEL [Suspect]
     Active Substance: DOCETAXEL
     Indication: LUNG NEOPLASM MALIGNANT
     Dosage: 140 MG, DAILY
     Route: 042
     Dates: start: 20160401, end: 20160401
  5. PALONOSETRON HYDROCHLORIDE. [Concomitant]
     Active Substance: PALONOSETRON HYDROCHLORIDE
     Indication: ANTIEMETIC SUPPORTIVE CARE
     Dosage: 250 ?G, UNKNOWN (AMPULE)
     Route: 042
     Dates: start: 20160401, end: 20160401

REACTIONS (3)
  - Flushing [Recovered/Resolved]
  - Respiratory distress [Recovered/Resolved]
  - Back pain [Recovered/Resolved]

NARRATIVE: CASE EVENT DATE: 20160401
